FAERS Safety Report 11629221 (Version 1)
Quarter: 2015Q4

REPORT INFORMATION
  Report Type: Spontaneous
  Country: US (occurrence: None)
  Receive Date: 20151013
  Receipt Date: 20151013
  Transmission Date: 20160304
  Serious: No
  Sender: FDA-Public Use
  Company Number: None

PATIENT
  Age: 27 Year
  Sex: Female
  Weight: 149.69 kg

DRUGS (19)
  1. TRILEPTAL [Concomitant]
     Active Substance: OXCARBAZEPINE
  2. NORCO [Concomitant]
     Active Substance: ACETAMINOPHEN\HYDROCODONE BITARTRATE
  3. VITAMIN D [Concomitant]
     Active Substance: CHOLECALCIFEROL
  4. MELATONIN [Concomitant]
     Active Substance: MELATONIN
  5. ADVAIR HFA [Concomitant]
     Active Substance: FLUTICASONE PROPIONATE\SALMETEROL XINAFOATE
  6. XANAX [Concomitant]
     Active Substance: ALPRAZOLAM
  7. MVI [Concomitant]
     Active Substance: VITAMINS
  8. GABAPENTIN. [Concomitant]
     Active Substance: GABAPENTIN
  9. ALBUTEROL. [Concomitant]
     Active Substance: ALBUTEROL
  10. ZYRTEC [Concomitant]
     Active Substance: CETIRIZINE HYDROCHLORIDE
  11. BIRTH CONTROL [Concomitant]
     Active Substance: UNSPECIFIED INGREDIENT
  12. IBUPROFEN. [Concomitant]
     Active Substance: IBUPROFEN
  13. GILENYA [Suspect]
     Active Substance: FINGOLIMOD HYDROCHLORIDE
     Indication: MULTIPLE SCLEROSIS
     Dosage: 1 PIL
     Route: 048
     Dates: start: 20150831, end: 20150930
  14. DULOXETINE. [Concomitant]
     Active Substance: DULOXETINE
  15. BENADRYL [Concomitant]
     Active Substance: DIPHENHYDRAMINE HYDROCHLORIDE
  16. TUMS [Concomitant]
     Active Substance: CALCIUM CARBONATE
  17. 5-HTP [Concomitant]
     Active Substance: OXITRIPTAN
  18. OMEGA 3 [Concomitant]
     Active Substance: OMEGA-3 FATTY ACIDS
  19. VITAMIN B12 [Concomitant]
     Active Substance: CYANOCOBALAMIN

REACTIONS (3)
  - Choking sensation [None]
  - Chest discomfort [None]
  - Muscle spasms [None]
